FAERS Safety Report 20091489 (Version 2)
Quarter: 2022Q1

REPORT INFORMATION
  Report Type: Spontaneous
  Country: US (occurrence: US)
  Receive Date: 20211119
  Receipt Date: 20220103
  Transmission Date: 20220424
  Serious: No
  Sender: FDA-Public Use
  Company Number: US-ORGANON-O2110USA002816

PATIENT
  Age: 20 Year
  Sex: Female
  Weight: 96.599 kg

DRUGS (1)
  1. NEXPLANON [Suspect]
     Active Substance: ETONOGESTREL
     Indication: Contraception
     Dosage: 1 IMPLANT (68MG,EVERY 3 YEARS), LEFT UPPER ARM
     Route: 059
     Dates: start: 20191018, end: 20211025

REACTIONS (6)
  - Device placement issue [Recovered/Resolved]
  - Medical device site discomfort [Recovered/Resolved]
  - Device breakage [Recovered/Resolved]
  - Nausea [Unknown]
  - Implant site paraesthesia [Unknown]
  - Implant site pruritus [Unknown]

NARRATIVE: CASE EVENT DATE: 20191018
